FAERS Safety Report 7574045-7 (Version None)
Quarter: 2011Q2

REPORT INFORMATION
  Report Type: 
  Country: None (occurrence: None)
  Receive Date: 20110627
  Receipt Date: 20110617
  Transmission Date: 20111010
  Serious: Yes (Other)
  Sender: FDA-Public Use
  Company Number: US-RB-026303-11

PATIENT
  Sex: Female

DRUGS (5)
  1. LYRICA [Concomitant]
  2. LEXAPRO [Concomitant]
  3. CELEBREX [Concomitant]
  4. DELSYM [Suspect]
     Indication: COUGH
     Dosage: PATIENT HAS DRUNK MULTILPE BOTTLES
     Route: 048
  5. AMOXICILLIN [Concomitant]

REACTIONS (9)
  - FEELING ABNORMAL [None]
  - GAIT DISTURBANCE [None]
  - SPEECH DISORDER [None]
  - DISORIENTATION [None]
  - SOMNOLENCE [None]
  - BLOOD PRESSURE INCREASED [None]
  - EYE DISORDER [None]
  - FATIGUE [None]
  - OVERDOSE [None]
